FAERS Safety Report 24357538 (Version 1)
Quarter: 2024Q3

REPORT INFORMATION
  Report Type: Report from Study
  Country: IN (occurrence: IN)
  Receive Date: 20240924
  Receipt Date: 20240924
  Transmission Date: 20241016
  Serious: Yes (Other)
  Sender: NOVARTIS
  Company Number: IN-SANDOZ-SDZ2024IN079865

PATIENT
  Sex: Male

DRUGS (2)
  1. TACROLIMUS [Suspect]
     Active Substance: TACROLIMUS
     Indication: Renal transplant
     Dosage: 2 MG, BID
     Route: 048
     Dates: start: 20240716
  2. MYFORTIC [Suspect]
     Active Substance: MYCOPHENOLATE SODIUM
     Indication: Renal transplant
     Dosage: 360 MG, TID
     Route: 048
     Dates: start: 20240716

REACTIONS (12)
  - Transplant dysfunction [Unknown]
  - Sepsis [Unknown]
  - Lower respiratory tract infection [Unknown]
  - Cardiac failure acute [Unknown]
  - Toxicity to various agents [Unknown]
  - Electrolyte imbalance [Recovering/Resolving]
  - Hypoalbuminaemia [Unknown]
  - Hypervolaemia [Recovered/Resolved]
  - Anaemia of chronic disease [Unknown]
  - Haemoglobin decreased [Unknown]
  - Blood albumin decreased [Unknown]
  - Renal function test abnormal [Recovering/Resolving]
